FAERS Safety Report 23254660 (Version 1)
Quarter: 2023Q4

REPORT INFORMATION
  Report Type: Spontaneous
  Country: US (occurrence: US)
  Receive Date: 20231203
  Receipt Date: 20231203
  Transmission Date: 20240110
  Serious: No
  Sender: FDA-Public Use
  Company Number: US-CSLP-61510997090-V13395905-4

PATIENT
  Age: 23 Year
  Sex: Male

DRUGS (2)
  1. ANTICOAGULANT SODIUM CITRATE [Suspect]
     Active Substance: SODIUM CITRATE
     Indication: Anticoagulant therapy
     Route: 050
     Dates: start: 20231117, end: 20231117
  2. SALINE [Concomitant]
     Active Substance: SODIUM CHLORIDE
     Indication: Product used for unknown indication
     Route: 065
     Dates: start: 20231117, end: 20231117

REACTIONS (10)
  - Dizziness [Recovered/Resolved]
  - Chills [Recovered/Resolved]
  - Hypoaesthesia [Recovered/Resolved]
  - Pallor [Recovered/Resolved]
  - Nausea [Recovered/Resolved]
  - Abdominal pain [Recovered/Resolved]
  - Muscle spasms [Recovered/Resolved]
  - Paraesthesia [Recovered/Resolved]
  - Hypoaesthesia oral [Recovered/Resolved]
  - Paraesthesia oral [Recovered/Resolved]

NARRATIVE: CASE EVENT DATE: 20231117
